FAERS Safety Report 10015673 (Version 2)
Quarter: 2014Q2

REPORT INFORMATION
  Report Type: Spontaneous
  Country: US (occurrence: US)
  Receive Date: 20140317
  Receipt Date: 20140527
  Transmission Date: 20141212
  Serious: No
  Sender: FDA-Public Use
  Company Number: US-PFIZER INC-2014070621

PATIENT
  Sex: Male

DRUGS (1)
  1. ZITHROMAX [Suspect]
     Dosage: UNK
     Route: 048

REACTIONS (2)
  - Product taste abnormal [Unknown]
  - Drug intolerance [Unknown]
